FAERS Safety Report 9886671 (Version 2)
Quarter: 2014Q1

REPORT INFORMATION
  Report Type: Spontaneous
  Country: DE (occurrence: DE)
  Receive Date: 20140210
  Receipt Date: 20140210
  Transmission Date: 20141002
  Serious: Yes (Hospitalization)
  Sender: FDA-Public Use
  Company Number: PHHY2013DE153261

PATIENT
  Sex: Male

DRUGS (10)
  1. GILENYA [Suspect]
     Indication: MULTIPLE SCLEROSIS
     Dosage: 0.5 MG, QD
     Route: 048
     Dates: start: 20131216, end: 2013
  2. TAMSULOSIN [Concomitant]
     Dosage: 0.4 MG, DAILY
  3. CITALOPRAM [Concomitant]
     Indication: DEPRESSION
     Dosage: 20 MG, DAILY
  4. IBUPROFEN [Concomitant]
     Indication: PAIN
     Dosage: 800 MG, BID
  5. MIRTAZAPINE [Concomitant]
     Indication: SLEEP DISORDER
     Dosage: 30 MG, BID
  6. VIGANTOLETTEN [Concomitant]
     Dosage: 1000 IU, DAILY
  7. FAMPYRA [Concomitant]
     Indication: MULTIPLE SCLEROSIS
     Dosage: 10 MG, DAILY
  8. L-THYROXIN [Concomitant]
     Indication: THYROID DISORDER
     Dosage: 75 UG, DAILY
  9. CALCIUM [Concomitant]
     Dosage: UNK UKN, DAILY
  10. ZOPICLONE [Concomitant]
     Indication: SLEEP DISORDER
     Dosage: 7.5 MG, DAILY

REACTIONS (2)
  - Vertigo [Recovering/Resolving]
  - Back pain [Not Recovered/Not Resolved]
